FAERS Safety Report 9288956 (Version 1)
Quarter: 2013Q2

REPORT INFORMATION
  Report Type: Spontaneous
  Country: US (occurrence: US)
  Receive Date: 20130514
  Receipt Date: 20130514
  Transmission Date: 20140414
  Serious: No
  Sender: FDA-Public Use
  Company Number: US-ASTRAZENECA-2013SE31598

PATIENT
  Age: 51 Year
  Sex: Female

DRUGS (2)
  1. ZOMIG [Suspect]
     Indication: MIGRAINE
     Dosage: WHOLE TABLET OF 2.5 MG AS REQUIRED
     Route: 048
  2. ZOMIG [Suspect]
     Indication: MIGRAINE
     Dosage: 2.5 MG AS REQUIRED, CUT INTO QUARTERS
     Route: 048

REACTIONS (2)
  - Feeling abnormal [Unknown]
  - Intentional drug misuse [Unknown]
